FAERS Safety Report 5356336-3 (Version None)
Quarter: 2007Q2

REPORT INFORMATION
  Report Type: 
  Country: None (occurrence: None)
  Receive Date: 20070530
  Receipt Date: 20070104
  Transmission Date: 20071010
  Serious: Yes (Hospitalization)
  Sender: FDA-Public Use
  Company Number: US200609004717

PATIENT
  Age: 51 Year
  Sex: Male
  Weight: 90.7 kg

DRUGS (2)
  1. ZYPREXA [Suspect]
     Dates: start: 20010122
  2. GLUCOVANCE [Concomitant]

REACTIONS (2)
  - DIABETES MELLITUS [None]
  - GLYCOSURIA [None]
